FAERS Safety Report 23611589 (Version 1)
Quarter: 2024Q1

REPORT INFORMATION
  Report Type: Report from Study
  Country: IN (occurrence: IN)
  Receive Date: 20240308
  Receipt Date: 20240308
  Transmission Date: 20240410
  Serious: Yes (Hospitalization)
  Sender: FDA-Public Use
  Company Number: IN-ELI_LILLY_AND_COMPANY-IN202402016727

PATIENT
  Age: 35 Year
  Sex: Female
  Weight: 75.7 kg

DRUGS (1)
  1. TRULICITY [Suspect]
     Active Substance: DULAGLUTIDE
     Indication: Type 2 diabetes mellitus
     Dosage: 1.5 MG, UNKNOWN
     Route: 058
     Dates: start: 20231227

REACTIONS (10)
  - Gastritis [Unknown]
  - Hyperchlorhydria [Unknown]
  - Kidney enlargement [Unknown]
  - Appetite disorder [Unknown]
  - Fluid intake reduced [Unknown]
  - Dehydration [Unknown]
  - Pancreatitis [Unknown]
  - Vomiting [Unknown]
  - Feeling abnormal [Unknown]
  - Lethargy [Unknown]

NARRATIVE: CASE EVENT DATE: 20231201
